FAERS Safety Report 8030319 (Version 4)
Quarter: 2012Q4

REPORT INFORMATION
  Report Type: Report from Study
  Country: JP (occurrence: JP)
  Receive Date: 20110712
  Receipt Date: 20121220
  Transmission Date: 20130627
  Serious: Yes (Death, Life-Threatening, Other)
  Sender: FDA-Public Use
  Company Number: JP-CELGENEUS-087-21880-11070238

PATIENT
  Age: 75 Year
  Sex: Male

DRUGS (14)
  1. REVLIMID [Suspect]
     Indication: MULTIPLE MYELOMA
     Dosage: 10 Milligram
     Route: 048
     Dates: start: 20110304, end: 20110310
  2. REVLIMID [Suspect]
     Dosage: 5 Milligram
     Route: 048
     Dates: start: 20110314, end: 20110314
  3. REVLIMID [Suspect]
     Dosage: 5 Milligram
     Route: 048
     Dates: start: 20110321, end: 20110325
  4. LENADEX [Suspect]
     Indication: MULTIPLE MYELOMA
     Dosage: 32 Milligram
     Route: 048
     Dates: start: 20110304, end: 20110306
  5. PREDONINE [Concomitant]
     Indication: MULTIPLE MYELOMA
     Dosage: 5-15mg
     Route: 048
     Dates: start: 20110307, end: 20110326
  6. PARIET [Concomitant]
     Indication: PROPHYLAXIS
     Dosage: 10 Milligram
     Route: 048
     Dates: start: 20110304, end: 20110326
  7. ZYLORIC [Concomitant]
     Indication: PROPHYLAXIS
     Dosage: 100-300mg
     Route: 048
     Dates: start: 20110304, end: 20110326
  8. MYCOSYST [Concomitant]
     Indication: PROPHYLAXIS
     Dosage: 100-200mg
     Route: 048
     Dates: start: 20110304, end: 20110326
  9. WARFARIN [Concomitant]
     Indication: PROPHYLAXIS
     Dosage: 0-5mg
     Route: 048
     Dates: start: 20110304, end: 20110326
  10. CELECOX [Concomitant]
     Indication: PROPHYLAXIS
     Dosage: 100-200mg
     Route: 048
     Dates: start: 20110304, end: 20110326
  11. METHYCOBAL [Concomitant]
     Indication: PROPHYLAXIS
     Dosage: 500-1500mg
     Route: 048
     Dates: start: 20110304, end: 20110326
  12. URSO [Concomitant]
     Indication: PROPHYLAXIS
     Dosage: 100-300mg
     Route: 048
     Dates: start: 20110304, end: 20110326
  13. MUCOSTA [Concomitant]
     Indication: PROPHYLAXIS
     Dosage: 100-300mg
     Route: 048
     Dates: start: 20110304, end: 20110326
  14. ENDOXAN [Concomitant]
     Indication: DRUG USE FOR UNKNOWN INDICATION
     Dosage: 100 Milligram
     Route: 048
     Dates: start: 20110323, end: 20110326

REACTIONS (6)
  - Thrombocytopenia [Not Recovered/Not Resolved]
  - Renal failure acute [Not Recovered/Not Resolved]
  - Atrial fibrillation [Recovering/Resolving]
  - Neutropenia [Not Recovered/Not Resolved]
  - Constipation [Not Recovered/Not Resolved]
  - Pneumonia [Recovering/Resolving]
